FAERS Safety Report 7361591-4 (Version None)
Quarter: 2011Q1

REPORT INFORMATION
  Report Type: 
  Country: None (occurrence: None)
  Receive Date: 20110318
  Receipt Date: 20110311
  Transmission Date: 20110831
  Serious: Yes (Other)
  Sender: FDA-Public Use
  Company Number: US-PFIZER INC-2006069873

PATIENT
  Sex: Male

DRUGS (6)
  1. NEURONTIN [Suspect]
     Dosage: 300 MG, UNK
     Dates: start: 20011228
  2. NEURONTIN [Suspect]
     Dosage: 300 MG, UNK
     Dates: start: 20011023
  3. NEURONTIN [Suspect]
     Dosage: 300 MG, UNK
     Dates: start: 20020413
  4. NEURONTIN [Suspect]
     Dosage: 300 MG, UNK
     Dates: start: 20020205
  5. NEURONTIN [Suspect]
     Dosage: 300 MG, UNK
     Dates: start: 20011121
  6. NEURONTIN [Suspect]
     Dosage: 300 MG, UNK
     Dates: start: 20020304

REACTIONS (2)
  - SUICIDE ATTEMPT [None]
  - LIMB INJURY [None]
